FAERS Safety Report 5306563-6 (Version None)
Quarter: 2007Q2

REPORT INFORMATION
  Report Type: 
  Country: None (occurrence: None)
  Receive Date: 20070418
  Receipt Date: 20070403
  Transmission Date: 20071010
  Serious: Yes (Hospitalization)
  Sender: FDA-Public Use
  Company Number: MEDI-0004442

PATIENT
  Age: 10 Month
  Weight: 4.88 kg

DRUGS (12)
  1. SYNAGIS [Suspect]
     Indication: ANTIVIRAL PROPHYLAXIS
     Dosage: 75 MG, 1 IN 30 D, INTRAMUSCULAR
     Route: 030
     Dates: start: 20051018, end: 20051206
  2. SYNAGIS [Suspect]
     Indication: BRONCHOPULMONARY DYSPLASIA
     Dosage: 75 MG, 1 IN 30 D, INTRAMUSCULAR
     Route: 030
     Dates: start: 20051018, end: 20051206
  3. SYNAGIS [Suspect]
     Indication: PREMATURE BABY
     Dosage: 75 MG, 1 IN 30 D, INTRAMUSCULAR
     Route: 030
     Dates: start: 20051018, end: 20051206
  4. SYNAGIS [Suspect]
     Dosage: 1 IN 30 D, INTRAMUSCULAR
     Route: 030
     Dates: start: 20051018
  5. SYNAGIS [Suspect]
     Dosage: 75 MG, 1 IN 30 D, INTRAMUSCULAR
     Route: 030
     Dates: start: 20051102
  6. SYNAGIS [Suspect]
     Dosage: 75 MG, 1 IN 30 D, INTRAMUSCULAR
     Route: 030
     Dates: start: 20060118
  7. SYNAGIS [Suspect]
     Dosage: 100 MG, 1 IN 30 D, INTRAMUSCULAR
     Route: 030
     Dates: start: 20060207
  8. SYNAGIS [Suspect]
     Dosage: 100 MG, 1 IN 30 D, INTRAMUSCULAR
     Route: 030
     Dates: start: 20060307, end: 20060307
  9. VITAMIN D (ERGOCALCIREROL) [Concomitant]
  10. FLUOR (SOCIUM FLUORIDE) [Concomitant]
  11. SALBUTAMOL (SALBUTAMOL) [Concomitant]
  12. BUDESONIDE [Concomitant]

REACTIONS (4)
  - ANOREXIA [None]
  - BRONCHIOLITIS [None]
  - FEEDING DISORDER [None]
  - GASTROENTERITIS [None]
